FAERS Safety Report 12463403 (Version 1)
Quarter: 2016Q2

REPORT INFORMATION
  Report Type: Spontaneous
  Country: US (occurrence: None)
  Receive Date: 20160613
  Receipt Date: 20160613
  Transmission Date: 20160815
  Serious: Yes (Life-Threatening, Hospitalization)
  Sender: FDA-Public Use
  Company Number: None

PATIENT
  Age: 65 Year
  Sex: Female
  Weight: 70.31 kg

DRUGS (4)
  1. BABY ASPIRIN [Concomitant]
     Active Substance: ASPIRIN
  2. I-CAPS [Concomitant]
  3. LIPITOR GENERIC [Concomitant]
     Active Substance: ATORVASTATIN CALCIUM
  4. TECHNETIUM SESTAMIBI [Suspect]
     Active Substance: TECHNETIUM TC-99M SESTAMIBI
     Indication: CARDIAC STRESS TEST
     Dosage: IN THE MORNING INTO A VEIN
     Route: 042

REACTIONS (14)
  - Paraesthesia [None]
  - Asthenia [None]
  - Aphasia [None]
  - Hypotension [None]
  - Ventricular extrasystoles [None]
  - Chest discomfort [None]
  - Dizziness [None]
  - Hyperhidrosis [None]
  - Extrasystoles [None]
  - Photopsia [None]
  - Visual field defect [None]
  - Dry mouth [None]
  - Device leakage [None]
  - Hypoaesthesia [None]

NARRATIVE: CASE EVENT DATE: 20160601
